FAERS Safety Report 4299234-9 (Version None)
Quarter: 2004Q1

REPORT INFORMATION
  Report Type: 
  Country: None (occurrence: None)
  Receive Date: 20040217
  Receipt Date: 20040210
  Transmission Date: 20041129
  Serious: Yes (Life-Threatening)
  Sender: FDA-Public Use
  Company Number: 0400004EN0020P

PATIENT
  Age: 13 Year
  Sex: Male

DRUGS (3)
  1. ONCASPAR [Suspect]
     Indication: ACUTE LYMPHOCYTIC LEUKAEMIA
     Dosage: 2500 IU/M2 QD
     Dates: start: 20030414, end: 20030429
  2. DOXORUBICIN HCL [Suspect]
     Indication: ACUTE LYMPHOCYTIC LEUKAEMIA
     Dosage: 30 MG/M2 ONCE
     Dates: start: 20030429, end: 20030429
  3. VINCRISTINE [Concomitant]

REACTIONS (16)
  - ANTITHROMBIN III DECREASED [None]
  - BLOOD BILIRUBIN INCREASED [None]
  - CEREBROVASCULAR ACCIDENT [None]
  - CONVULSION [None]
  - DRUG TOXICITY [None]
  - DYSPHAGIA [None]
  - GASTROINTESTINAL HAEMORRHAGE [None]
  - HEPATIC ENZYME INCREASED [None]
  - HEPATIC FUNCTION ABNORMAL [None]
  - HYPOALBUMINAEMIA [None]
  - MUCOSAL INFLAMMATION [None]
  - NEUTROPENIA [None]
  - PANCYTOPENIA [None]
  - PROTEIN C DECREASED [None]
  - PROTEIN S DECREASED [None]
  - SIMPLE PARTIAL SEIZURES [None]
